FAERS Safety Report 16422600 (Version 2)
Quarter: 2019Q4

REPORT INFORMATION
  Report Type: Spontaneous
  Country: GB (occurrence: GB)
  Receive Date: 20190612
  Receipt Date: 20191210
  Transmission Date: 20200122
  Serious: Yes (Death, Other)
  Sender: FDA-Public Use
  Company Number: GB-PFIZER INC-2019248489

PATIENT
  Sex: Male
  Weight: 52 kg

DRUGS (10)
  1. DOXORUBICIN [Suspect]
     Active Substance: DOXORUBICIN
     Dosage: 40 MG, UNK
     Dates: start: 20181108, end: 20181108
  2. ATORVASTATIN [Concomitant]
     Active Substance: ATORVASTATIN
     Dosage: 40 MG, 1X/DAY
  3. CLOPIDOGREL [Concomitant]
     Active Substance: CLOPIDOGREL BISULFATE
     Dosage: 75 MG, 1X/DAY
  4. ISOSORBIDE MONONITRATE. [Concomitant]
     Active Substance: ISOSORBIDE MONONITRATE
     Dosage: 40 MG, 1X/DAY
  5. GAVISCON ADVANCE [SODIUM ALGINATE] [Concomitant]
  6. RAMIPRIL. [Concomitant]
     Active Substance: RAMIPRIL
     Dosage: 10 MG, 1X/DAY
  7. LANSOPRAZOLE. [Concomitant]
     Active Substance: LANSOPRAZOLE
     Dosage: 30 MG, 1X/DAY
  8. DACARBAZINE. [Suspect]
     Active Substance: DACARBAZINE
     Dosage: 560 MG, UNK
     Dates: start: 20181108, end: 20181108
  9. LEVOTHYROXINE. [Concomitant]
     Active Substance: LEVOTHYROXINE
     Dosage: 100 UG, 1X/DAY
  10. VINBLASTINE [Suspect]
     Active Substance: VINBLASTINE
     Dosage: 9 MG, UNK
     Dates: start: 20181108, end: 20191108

REACTIONS (4)
  - Tachycardia [Not Recovered/Not Resolved]
  - Ejection fraction decreased [Unknown]
  - Anaphylactic reaction [Fatal]
  - Pulseless electrical activity [Not Recovered/Not Resolved]

NARRATIVE: CASE EVENT DATE: 2018
